FAERS Safety Report 22136037 (Version 1)
Quarter: 2023Q1

REPORT INFORMATION
  Report Type: Spontaneous
  Country: FR (occurrence: FR)
  Receive Date: 20230324
  Receipt Date: 20230324
  Transmission Date: 20230417
  Serious: Yes (Other)
  Sender: FDA-Public Use
  Company Number: None

PATIENT
  Age: 50 Year
  Sex: Male
  Weight: 65 kg

DRUGS (2)
  1. RILPIVIRINE [Suspect]
     Active Substance: RILPIVIRINE
     Indication: HIV infection
     Dosage: ACCORDING TO PROTOCOL THE 2 FIRST IM INJECTIONS ARE GIVEN 1 MONTH APART, IN HOSPITAL THEN EVERY 2 MO
     Route: 030
     Dates: start: 20220810, end: 20230208
  2. VOCABRIA [Suspect]
     Active Substance: CABOTEGRAVIR SODIUM
     Indication: HIV infection
     Dosage: ACCORDING TO PROTOCOL THE 2 FIRST IM INJECTIONS ARE GIVEN 1 MONTH APART, AT HOSPITAL THEN EVERY 2 MO
     Route: 030
     Dates: start: 20220810, end: 20230208

REACTIONS (2)
  - Abscess limb [Not Recovered/Not Resolved]
  - Injection site panniculitis [Recovering/Resolving]

NARRATIVE: CASE EVENT DATE: 20221215
